FAERS Safety Report 11835304 (Version 2)
Quarter: 2016Q1

REPORT INFORMATION
  Report Type: Report from Study
  Country: US (occurrence: US)
  Receive Date: 20151215
  Receipt Date: 20160120
  Transmission Date: 20160525
  Serious: No
  Sender: FDA-Public Use
  Company Number: US-AMGEN-USASL2015131579

PATIENT
  Age: 49 Year
  Sex: Female

DRUGS (1)
  1. ENBREL [Suspect]
     Active Substance: ETANERCEPT
     Indication: RHEUMATOID ARTHRITIS
     Dosage: 50 MG, QWK (ONCE WEEKLY)
     Route: 065
     Dates: start: 20151004

REACTIONS (6)
  - Ear infection [Recovered/Resolved]
  - Pain in extremity [Unknown]
  - Sinusitis [Unknown]
  - Rash pruritic [Unknown]
  - Injection site pain [Unknown]
  - Arthritis [Unknown]

NARRATIVE: CASE EVENT DATE: 2015
